FAERS Safety Report 6976121-6 (Version None)
Quarter: 2010Q3

REPORT INFORMATION
  Report Type: 
  Country: None (occurrence: None)
  Receive Date: 20100910
  Receipt Date: 20100907
  Transmission Date: 20110219
  Serious: Yes (Hospitalization)
  Sender: FDA-Public Use
  Company Number: JP-BRACCO-003821

PATIENT
  Sex: Female

DRUGS (4)
  1. IOPAMIDOL [Suspect]
     Indication: CHOLELITHIASIS
     Route: 042
     Dates: start: 20100713, end: 20100713
  2. IOPAMIDOL [Suspect]
     Indication: COMPUTERISED TOMOGRAM
     Route: 042
     Dates: start: 20100713, end: 20100713
  3. MANGANESE CHLORIDE [Suspect]
     Indication: MAGNETIC RESONANCE CHOLANGIOPANCREATOGRAPHY
     Route: 048
     Dates: start: 20100713, end: 20100713
  4. MANGANESE CHLORIDE [Suspect]
     Indication: CHOLELITHIASIS
     Route: 048
     Dates: start: 20100713, end: 20100713

REACTIONS (3)
  - FACE OEDEMA [None]
  - FEELING HOT [None]
  - TOXIC SKIN ERUPTION [None]
